FAERS Safety Report 7530519-6 (Version None)
Quarter: 2011Q2

REPORT INFORMATION
  Report Type: 
  Country: None (occurrence: None)
  Receive Date: 20110607
  Receipt Date: 20110525
  Transmission Date: 20111010
  Serious: Yes (Hospitalization)
  Sender: FDA-Public Use
  Company Number: CH-BAYER-2011-044566

PATIENT
  Age: 76 Year
  Sex: Female

DRUGS (11)
  1. TENORMIN [Concomitant]
     Dosage: 12.5 MG, QD
     Route: 048
  2. ACETYLSALICYLIC ACID SRT [Suspect]
     Dosage: 500 MG, PRN
     Route: 048
     Dates: end: 20101213
  3. CALCIMAGON [Concomitant]
     Dosage: UNK
     Route: 048
  4. HUMIRA [Concomitant]
     Dosage: 40 MG, Q2WK
     Route: 058
  5. PANTOPRAZOLE [Concomitant]
     Dosage: 40 MG, QD
     Route: 048
  6. PENTOXY [Concomitant]
     Dosage: 400 MG, BID
     Route: 048
  7. OXYCONTIN [Concomitant]
     Dosage: 20 MG, BID
     Route: 048
  8. NAPROXEN [Interacting]
     Dosage: 500 MG, BID
     Route: 048
     Dates: end: 20101213
  9. COZAAR [Concomitant]
     Dosage: 100 MG, QD
     Route: 048
  10. BETASERC [Concomitant]
     Dosage: 16 MG, BID
     Route: 048
  11. TERIPARATIDE [Concomitant]
     Dosage: UNK
     Route: 058

REACTIONS (4)
  - PERITONITIS [None]
  - TACHYCARDIA [None]
  - SMALL INTESTINAL PERFORATION [None]
  - SEPSIS [None]
